FAERS Safety Report 8192622-X (Version None)
Quarter: 2012Q1

REPORT INFORMATION
  Report Type: 
  Country: None (occurrence: None)
  Receive Date: 20120221
  Receipt Date: 20120105
  Transmission Date: 20120608
  Serious: No
  Sender: FDA-Public Use
  Company Number: 1000026736

PATIENT
  Age: 55 Year
  Sex: Female

DRUGS (3)
  1. VIIBRYD [Suspect]
     Indication: DEPRESSION
     Dosage: 20 MG (20 MG, 1 IN 1 D),ORAL, 10 MG (10 MG,1 IN 1 D),ORAL
     Route: 048
     Dates: start: 20120101
  2. VIIBRYD [Suspect]
     Indication: DEPRESSION
     Dosage: 20 MG (20 MG, 1 IN 1 D),ORAL, 10 MG (10 MG,1 IN 1 D),ORAL
     Route: 048
     Dates: start: 20111201, end: 20120101
  3. VIIBRYD [Suspect]
     Indication: DEPRESSION
     Dosage: 10 MG (10 MG,1 IN 1 D),ORAL
     Route: 048
     Dates: start: 20111201, end: 20111201

REACTIONS (1)
  - DRY EYE [None]
